FAERS Safety Report 25008861 (Version 3)
Quarter: 2025Q3

REPORT INFORMATION
  Report Type: Spontaneous
  Country: EU (occurrence: EU)
  Receive Date: 20250225
  Receipt Date: 20250720
  Transmission Date: 20251021
  Serious: Yes (Disabling, Other)
  Sender: AUROBINDO
  Company Number: EU-MLMSERVICE-20250206-PI398269-00052-1

PATIENT
  Age: 10 Year
  Sex: Male

DRUGS (4)
  1. AMOXICILLIN [Suspect]
     Active Substance: AMOXICILLIN
     Indication: Pneumonia
     Dosage: 500 MILLIGRAM, 3 TIMES A DAY
     Route: 048
  2. AMOXICILLIN [Suspect]
     Active Substance: AMOXICILLIN
     Indication: Pneumonia bacterial
  3. AMOXICILLIN [Suspect]
     Active Substance: AMOXICILLIN
     Indication: Viral infection
  4. AMOXICILLIN [Suspect]
     Active Substance: AMOXICILLIN
     Indication: Superinfection bacterial

REACTIONS (2)
  - Acute myopia [Recovered/Resolved]
  - Choroidal effusion [Recovered/Resolved]
